FAERS Safety Report 8991835 (Version 1)
Quarter: 2012Q4

REPORT INFORMATION
  Report Type: 
  Country: US (occurrence: US)
  Receive Date: 20121231
  Receipt Date: 20121231
  Transmission Date: 20130627
  Serious: Yes (Other)
  Sender: FDA-Public Use
  Company Number: PHHY2012US121171

PATIENT
  Sex: Male

DRUGS (1)
  1. FUROSEMIDE [Suspect]

REACTIONS (5)
  - Acrodermatitis enteropathica [Recovered/Resolved]
  - Rash erythematous [Recovered/Resolved]
  - Dermatitis [Recovered/Resolved]
  - Parakeratosis [Recovered/Resolved]
  - Blood zinc decreased [Unknown]
